FAERS Safety Report 9022267 (Version 2)
Quarter: 2013Q1

REPORT INFORMATION
  Report Type: Spontaneous
  Country: US (occurrence: US)
  Receive Date: 20130118
  Receipt Date: 20130214
  Transmission Date: 20140127
  Serious: Yes (Other)
  Sender: FDA-Public Use
  Company Number: PHEH2013US001498

PATIENT
  Sex: Female

DRUGS (1)
  1. DIOVAN [Suspect]
     Dosage: 80 MG, UNK

REACTIONS (5)
  - Kidney infection [Unknown]
  - Balance disorder [Unknown]
  - Fall [Unknown]
  - Limb injury [Unknown]
  - Dysgraphia [Unknown]
